FAERS Safety Report 16575456 (Version 6)
Quarter: 2019Q4

REPORT INFORMATION
  Report Type: Report from Study
  Country: JP (occurrence: JP)
  Receive Date: 20190716
  Receipt Date: 20191119
  Transmission Date: 20200122
  Serious: Yes (Death, Life-Threatening, Other)
  Sender: FDA-Public Use
  Company Number: JP-ASTELLAS-2019JP014311

PATIENT
  Age: 64 Year
  Sex: Female

DRUGS (28)
  1. ASCATE [Concomitant]
     Indication: PRODUCT USED FOR UNKNOWN INDICATION
     Dosage: 2700 MG/DAY, UNKNOWN FREQ.
     Route: 048
     Dates: start: 20190610, end: 20190619
  2. ASP2215 [Suspect]
     Active Substance: GILTERITINIB
     Route: 048
     Dates: start: 20190704, end: 20190709
  3. FOSCAVIR [Suspect]
     Active Substance: FOSCARNET SODIUM
     Indication: GASTROINTESTINAL HAEMORRHAGE
  4. VORICONAZOLE. [Interacting]
     Active Substance: VORICONAZOLE
     Indication: PRODUCT USED FOR UNKNOWN INDICATION
     Dosage: UNK UNK, UNKNOWN FREQ.
     Route: 065
  5. TAZOPIP [Concomitant]
     Active Substance: PIPERACETAZINE\TAZOBACTAM
     Indication: FEBRILE NEUTROPENIA
     Dosage: 18 G/DAY, UNKNOWN FREQ.
     Route: 065
     Dates: start: 20190606, end: 20190621
  6. SOLU-MEDROL [Concomitant]
     Active Substance: METHYLPREDNISOLONE SODIUM SUCCINATE
     Indication: PRODUCT USED FOR UNKNOWN INDICATION
     Dosage: 180 MG/DAY, UNKNOWN FREQ.
     Route: 065
     Dates: start: 20190620, end: 20190828
  7. ALBUMIN [Concomitant]
     Active Substance: ALBUMIN HUMAN
     Indication: SEPTIC SHOCK
     Dosage: 10 G/DAY, UNKNOWN FREQ.
     Route: 065
     Dates: start: 20190703, end: 20190804
  8. ASP2215 [Suspect]
     Active Substance: GILTERITINIB
     Indication: ACUTE MYELOID LEUKAEMIA RECURRENT
     Route: 048
     Dates: start: 20190531, end: 20190703
  9. ASP2215 [Suspect]
     Active Substance: GILTERITINIB
     Route: 048
     Dates: start: 20190710, end: 20190712
  10. MAGNESIUM SULFATE. [Concomitant]
     Active Substance: MAGNESIUM SULFATE
     Indication: PRODUCT USED FOR UNKNOWN INDICATION
     Dosage: UNK UNK, UNKNOWN FREQ.
     Route: 065
     Dates: start: 20190621, end: 20190707
  11. ELENTAL [Concomitant]
     Active Substance: AMINO ACIDS\CARBOHYDRATES\MINERALS\SOYBEAN OIL\VITAMINS
     Indication: PRODUCT USED FOR UNKNOWN INDICATION
     Dosage: 3 DF/DAY, UNKNOWN FREQ.
     Route: 048
     Dates: start: 20190628, end: 20190704
  12. PROGRAF [Interacting]
     Active Substance: TACROLIMUS
     Indication: BONE MARROW TRANSPLANT REJECTION
     Dosage: UNK UNK, UNKNOWN FREQ.
     Route: 048
  13. LEVOFLOXACIN. [Concomitant]
     Active Substance: LEVOFLOXACIN
     Indication: PRODUCT USED FOR UNKNOWN INDICATION
     Dosage: 500 MG/DAY, UNKNOWN FREQ.
     Route: 065
     Dates: start: 20190601, end: 20190607
  14. KCL CORRECTIVE [Concomitant]
     Indication: HYPOKALAEMIA
     Dosage: UNK UNK, UNKNOWN FREQ.
     Route: 065
     Dates: start: 20190620, end: 20190812
  15. TEICOPLANIN [Concomitant]
     Active Substance: TEICOPLANIN
     Indication: SEPTIC SHOCK
     Dosage: 1.0 G/DAY, UNKNOWN FREQ.
     Route: 065
     Dates: start: 20190702, end: 20190704
  16. FILGRASTIM [Concomitant]
     Active Substance: FILGRASTIM
     Indication: NEUTROPENIA
     Dosage: 150 ?G/DAY, UNKNOWN FREQ.
     Route: 065
     Dates: start: 20190703, end: 20190725
  17. VFEND [Concomitant]
     Active Substance: VORICONAZOLE
     Indication: PROPHYLAXIS
     Dosage: 400 MG/DAY, UNKNOWN FREQ.
     Route: 048
     Dates: end: 20190717
  18. BIOFERMIN R [Concomitant]
     Active Substance: DIETARY SUPPLEMENT\PROBIOTICS
     Indication: PRODUCT USED FOR UNKNOWN INDICATION
     Dosage: 3 DF/DAY, UNKNOWN FREQ.
     Route: 048
     Dates: start: 20190608, end: 20190616
  19. MEROPEN                            /01250501/ [Concomitant]
     Active Substance: MEROPENEM
     Dosage: 2.0 G/DAY, UNKNOWN FREQ.
     Route: 065
     Dates: start: 20190705, end: 20190708
  20. MEROPEN                            /01250501/ [Concomitant]
     Active Substance: MEROPENEM
     Dosage: 2.0 G/DAY, UNKNOWN FREQ.
     Route: 065
     Dates: start: 20190731, end: 20190828
  21. TEICOPLANIN [Concomitant]
     Active Substance: TEICOPLANIN
     Dosage: 1.0 G/DAY, UNKNOWN FREQ.
     Route: 065
     Dates: start: 20190805, end: 20190826
  22. SLOW-K [Concomitant]
     Active Substance: POTASSIUM CHLORIDE
     Indication: HYPOKALAEMIA
     Dosage: 1200 MG/DAY, UNKNOWN FREQ.
     Route: 048
     Dates: end: 20190603
  23. FOSCAVIR [Suspect]
     Active Substance: FOSCARNET SODIUM
     Indication: CYTOMEGALOVIRUS ENTEROCOLITIS
     Dosage: 10176 MG/DAY, UNKNOWN FREQ.
     Route: 065
     Dates: start: 20190630, end: 20190707
  24. VALIXA [Concomitant]
     Active Substance: VALGANCICLOVIR
     Indication: PRODUCT USED FOR UNKNOWN INDICATION
     Dosage: 900 MG/DAY, UNKNOWN FREQ.
     Route: 048
     Dates: start: 20190612, end: 20190619
  25. BIO-THREE [Concomitant]
     Active Substance: HERBALS
     Indication: PRODUCT USED FOR UNKNOWN INDICATION
     Dosage: 3 DF/DAY, UNKNOWN FREQ.
     Route: 048
     Dates: start: 20190701, end: 20190717
  26. BECLOMETASONE [Concomitant]
     Active Substance: BECLOMETHASONE DIPROPIONATE
     Indication: PRODUCT USED FOR UNKNOWN INDICATION
     Dosage: 4 MG/DAY, UNKNOWN FREQ.
     Route: 048
     Dates: start: 20190613, end: 20190717
  27. MEROPEN                            /01250501/ [Concomitant]
     Active Substance: MEROPENEM
     Indication: PRODUCT USED FOR UNKNOWN INDICATION
     Dosage: 3 G/DAY, UNKNOWN FREQ.
     Route: 065
     Dates: start: 20190621, end: 20190626
  28. SODIUM PHOSPHATE [Concomitant]
     Active Substance: SODIUM PHOSPHATE
     Indication: HYPOPHOSPHATAEMIA
     Dosage: UNK UNK, UNKNOWN FREQ.
     Route: 065
     Dates: start: 20190630, end: 20190704

REACTIONS (18)
  - Septic shock [Recovered/Resolved]
  - Hepatic function abnormal [Recovering/Resolving]
  - Gastrointestinal haemorrhage [Fatal]
  - Blood urea increased [Unknown]
  - Hyperglycaemia [Not Recovered/Not Resolved]
  - Neutrophil count decreased [Not Recovered/Not Resolved]
  - Anaemia [Not Recovered/Not Resolved]
  - Drug interaction [Unknown]
  - Platelet count decreased [Not Recovered/Not Resolved]
  - Drug level increased [Unknown]
  - Febrile neutropenia [Recovered/Resolved]
  - Hypocalcaemia [Recovered/Resolved]
  - Graft versus host disease in gastrointestinal tract [Fatal]
  - Neuralgia [Not Recovered/Not Resolved]
  - Cytomegalovirus enterocolitis [Not Recovered/Not Resolved]
  - Hypokalaemia [Recovered/Resolved]
  - Renal impairment [Not Recovered/Not Resolved]
  - Hypophosphataemia [Recovered/Resolved]

NARRATIVE: CASE EVENT DATE: 20190602
